FAERS Safety Report 8609331-2 (Version None)
Quarter: 2012Q3

REPORT INFORMATION
  Report Type: 
  Country: None (occurrence: None)
  Receive Date: 20120821
  Receipt Date: 20120814
  Transmission Date: 20120928
  Serious: Yes (Hospitalization, Other)
  Sender: FDA-Public Use
  Company Number: PHHY2012VE069506

PATIENT
  Sex: Male

DRUGS (7)
  1. ZOLEDRONOC ACID [Suspect]
     Indication: OSTEOPOROSIS
     Dosage: 5 MG, ANNUALLY
     Route: 042
     Dates: start: 20120501
  2. ARAVA [Concomitant]
     Indication: RHEUMATOID ARTHRITIS
     Dosage: UNK UKN, QD
     Route: 048
  3. CALCIUM CITRATE [Concomitant]
     Indication: OSTEOPOROSIS
     Dosage: UNK UKN, QD
     Route: 048
  4. VOLTAREN [Concomitant]
     Dosage: UNK UKN, UNK
     Route: 048
  5. PREDNISONE [Concomitant]
     Indication: RHEUMATOID ARTHRITIS
     Dosage: UNK UKN, QD
     Route: 048
  6. FOLIC ACID [Concomitant]
     Dosage: UNK UKN, QD
     Route: 048
  7. CATAFLAM [Concomitant]
     Dosage: UNK UKN, UNK
     Route: 048

REACTIONS (5)
  - CHONDROPATHY [None]
  - ARTHRITIS [None]
  - GENERAL SYMPTOM [None]
  - ARTHRALGIA [None]
  - OEDEMA PERIPHERAL [None]
